FAERS Safety Report 21689972 (Version 1)
Quarter: 2022Q4

REPORT INFORMATION
  Report Type: Report from Study
  Country: DE (occurrence: DE)
  Receive Date: 20221206
  Receipt Date: 20221206
  Transmission Date: 20230113
  Serious: Yes (Hospitalization, Other)
  Sender: FDA-Public Use
  Company Number: DE-EMA-DD-20210510-banala_s-122828

PATIENT
  Age: 27 Year
  Sex: Female

DRUGS (10)
  1. HYDROCORTISONE [Suspect]
     Active Substance: HYDROCORTISONE
     Indication: Adrenal insufficiency
     Dosage: 100 MILLIGRAM DAILY; 100 MG, OTHER (60 MG MORNING, 30 MG MIDDAY, 10 MG EVENING), THERAPY END DATE :
     Route: 065
     Dates: start: 2017
  2. HYDROCORTISONE [Suspect]
     Active Substance: HYDROCORTISONE
     Dosage: 100 MILLIGRAM DAILY; 100 MG, OTHER (40 MG MORNING, 20 MG MIDDAY, 10 MG EVENING), THERAPY START DATE
     Route: 065
     Dates: end: 2017
  3. HYDROCORTISONE [Suspect]
     Active Substance: HYDROCORTISONE
     Dosage: 200 MILLIGRAM DAILY; 100 MG, 2X/DAY : BID, FREQUENCY TIME : 1 DAYS, THERAPY END DATE : NASK
     Route: 065
     Dates: start: 20170225
  4. HYDROCORTISONE [Suspect]
     Active Substance: HYDROCORTISONE
     Dosage: 300 MILLIGRAM DAILY; 100 MG, 3X/DAY : TID, UNIT DOSE : 300 MG, FREQUENCY TIME : 1 DAYS, THERAPY END
     Route: 065
     Dates: start: 20170225
  5. CHOLECALCIFEROL [Concomitant]
     Active Substance: CHOLECALCIFEROL
     Indication: Prophylaxis
     Dosage: 1000 IU (INTERNATIONAL UNIT) DAILY;
     Route: 065
     Dates: start: 2014
  6. SYMBICORT [Concomitant]
     Active Substance: BUDESONIDE\FORMOTEROL FUMARATE DIHYDRATE
     Indication: Asthma
     Dosage: 320 MICROGRAM DAILY; 160 UG, 2X/DAY:BID,, FREQUENCY TIME : 1 DAYS
     Route: 065
     Dates: start: 2014
  7. ALBUTEROL [Concomitant]
     Active Substance: ALBUTEROL
     Indication: Bronchial hyperreactivity
     Dosage: UNK, AS REQ^D (1 OTHER)
     Route: 065
     Dates: start: 2015
  8. VENLAFAXINE [Concomitant]
     Active Substance: VENLAFAXINE HYDROCHLORIDE
     Indication: Prophylaxis
     Dosage: 75 MILLIGRAM DAILY;
     Route: 065
     Dates: start: 20160718
  9. PANTOPRAZOLE SODIUM [Concomitant]
     Active Substance: PANTOPRAZOLE SODIUM
     Indication: Prophylaxis against gastrointestinal ulcer
     Dosage: 40 MILLIGRAM DAILY;
     Route: 065
     Dates: start: 2014
  10. MINERALS\VITAMINS [Concomitant]
     Active Substance: MINERALS\VITAMINS
     Indication: Prophylaxis
     Dosage: UNK, 1X/DAY:QD (1 OTHER), FREQUENCY TIME : 1 DAYS
     Route: 065
     Dates: start: 2016

REACTIONS (2)
  - Gastroenteritis viral [Recovered/Resolved]
  - Adrenal insufficiency [Recovered/Resolved]

NARRATIVE: CASE EVENT DATE: 20170225
